FAERS Safety Report 18106300 (Version 3)
Quarter: 2021Q2

REPORT INFORMATION
  Report Type: Spontaneous
  Country: US (occurrence: US)
  Receive Date: 20200803
  Receipt Date: 20210629
  Transmission Date: 20210717
  Serious: Yes (Hospitalization)
  Sender: FDA-Public Use
  Company Number: US-TEVA-2020-US-1810010

PATIENT
  Age: 8 Year
  Sex: Female

DRUGS (1)
  1. ISOTRETINOIN. [Suspect]
     Active Substance: ISOTRETINOIN
     Indication: NEUROBLASTOMA
     Dosage: 160 MG/M2 DAILY; IN 2 DOSES IN 2 WEEKS ON AND 2 WEEKS OFF; RECEIVED 8 CYCLES IN TOTAL
     Route: 065

REACTIONS (2)
  - Epiphyses premature fusion [Not Recovered/Not Resolved]
  - Knee deformity [Not Recovered/Not Resolved]
